FAERS Safety Report 18224585 (Version 2)
Quarter: 2020Q3

REPORT INFORMATION
  Report Type: Report from Study
  Country: ES (occurrence: ES)
  Receive Date: 20200902
  Receipt Date: 20200904
  Transmission Date: 20201103
  Serious: Yes (Hospitalization)
  Sender: FDA-Public Use
  Company Number: ES-SA-2020SA230745

PATIENT

DRUGS (11)
  1. IRINOTECAN [Suspect]
     Active Substance: IRINOTECAN
     Dosage: 300 MG, QOW
     Route: 042
     Dates: start: 20200609, end: 20200609
  2. FOLINIC ACID [Suspect]
     Active Substance: LEUCOVORIN
     Dosage: 800 MG, QOW
     Route: 042
     Dates: start: 20200609, end: 20200609
  3. FOLINIC ACID [Suspect]
     Active Substance: LEUCOVORIN
     Indication: COLON CANCER METASTATIC
     Dosage: 800 MG, QOW
     Route: 042
     Dates: start: 20200811, end: 20200811
  4. FLUOROURACIL. [Suspect]
     Active Substance: FLUOROURACIL
     Indication: COLON CANCER METASTATIC
     Dosage: 600 MG, QOW
     Route: 040
     Dates: start: 20200811, end: 20200811
  5. ENALAPRIL [Concomitant]
     Active Substance: ENALAPRIL
     Indication: HYPERTENSION
     Dosage: 20 MG
     Route: 048
  6. AFLIBERCEPT [Suspect]
     Active Substance: AFLIBERCEPT
     Indication: COLON CANCER METASTATIC
     Dosage: 450, QOW
     Route: 042
     Dates: start: 20200811, end: 20200811
  7. IRINOTECAN [Suspect]
     Active Substance: IRINOTECAN
     Indication: COLON CANCER METASTATIC
     Dosage: 300 MG, QOW
     Route: 042
     Dates: start: 20200811, end: 20200811
  8. FLUOROURACIL. [Suspect]
     Active Substance: FLUOROURACIL
     Dosage: 4000 MG, QOW
     Route: 042
     Dates: start: 20200809, end: 20200809
  9. FLUOROURACIL. [Suspect]
     Active Substance: FLUOROURACIL
     Dosage: 4000 MG, QOW
     Route: 042
     Dates: start: 20200811, end: 20200811
  10. AFLIBERCEPT [Suspect]
     Active Substance: AFLIBERCEPT
     Dosage: 450 MG, QOW
     Route: 042
     Dates: start: 20200609, end: 20200609
  11. FLUOROURACIL. [Suspect]
     Active Substance: FLUOROURACIL
     Dosage: 600 MG, QOW
     Route: 040
     Dates: start: 20200809, end: 20200809

REACTIONS (2)
  - Pulmonary embolism [Recovering/Resolving]
  - Musculoskeletal chest pain [Unknown]

NARRATIVE: CASE EVENT DATE: 20200825
